FAERS Safety Report 13152433 (Version 1)
Quarter: 2017Q1

REPORT INFORMATION
  Report Type: Report from Study
  Country: None (occurrence: IL)
  Receive Date: 20170125
  Receipt Date: 20170125
  Transmission Date: 20170428
  Serious: Yes (Hospitalization)
  Sender: FDA-Public Use
  Company Number: IL-ABBVIE-17P-082-1846323-00

PATIENT
  Sex: Male

DRUGS (1)
  1. DUODOPA [Suspect]
     Active Substance: CARBIDOPA\LEVODOPA
     Indication: PARKINSON^S DISEASE
     Dosage: AM DOSE: 7.7 ML, CURRENT FIXED RATE:2.4 ML/ HOUR,CURRENT EXTRA DOSE- 1.5 ML
     Route: 050
     Dates: start: 20160925

REACTIONS (3)
  - Intestinal ischaemia [Not Recovered/Not Resolved]
  - Gastrointestinal oedema [Not Recovered/Not Resolved]
  - Intestinal obstruction [Not Recovered/Not Resolved]
